FAERS Safety Report 7507111-2 (Version None)
Quarter: 2011Q2

REPORT INFORMATION
  Report Type: 
  Country: None (occurrence: None)
  Receive Date: 20110526
  Receipt Date: 20110517
  Transmission Date: 20111010
  Serious: Yes (Hospitalization, Other)
  Sender: FDA-Public Use
  Company Number: US-ELI_LILLY_AND_COMPANY-US201105005525

PATIENT
  Age: 86 Year
  Sex: Female

DRUGS (3)
  1. HUMALOG [Suspect]
  2. HUMALOG MIX 50/50 [Suspect]
     Indication: DIABETES MELLITUS
     Dosage: 17 U, UNK
  3. HUMULIN 70/30 [Suspect]
     Indication: DIABETES MELLITUS
     Dosage: 33 U, UNK

REACTIONS (6)
  - EYE DISORDER [None]
  - DRUG DISPENSING ERROR [None]
  - THROMBOSIS [None]
  - OPTIC NERVE DISORDER [None]
  - CEREBROVASCULAR ACCIDENT [None]
  - MUSCULAR WEAKNESS [None]
